FAERS Safety Report 7757281-6 (Version None)
Quarter: 2011Q3

REPORT INFORMATION
  Report Type: 
  Country: None (occurrence: None)
  Receive Date: 20110916
  Receipt Date: 20110905
  Transmission Date: 20111222
  Serious: Yes (Other)
  Sender: FDA-Public Use
  Company Number: JP-SANOFI-AVENTIS-2011SA058712

PATIENT

DRUGS (6)
  1. VITAMIN E [Concomitant]
  2. HERBAL PREPARATION [Concomitant]
  3. EPA [Concomitant]
  4. CHLORHEXIDINE/FLUOR/GINGKO BILOBA/VITAMIN E [Concomitant]
  5. PLAVIX [Suspect]
     Route: 065
  6. ASPIRIN [Concomitant]

REACTIONS (5)
  - BLOOD CREATINE PHOSPHOKINASE DECREASED [None]
  - WHITE BLOOD CELL COUNT DECREASED [None]
  - PLATELET COUNT DECREASED [None]
  - RED BLOOD CELL COUNT DECREASED [None]
  - CONTUSION [None]
